FAERS Safety Report 8223442-5 (Version None)
Quarter: 2012Q1

REPORT INFORMATION
  Report Type: 
  Country: None (occurrence: None)
  Receive Date: 20120307
  Receipt Date: 20101105
  Transmission Date: 20120608
  Serious: Yes (Hospitalization)
  Sender: FDA-Public Use
  Company Number: PHHY2010US75760

PATIENT
  Sex: Female

DRUGS (2)
  1. AFINITOR [Suspect]
     Indication: METASTATIC RENAL CELL CARCINOMA
     Dosage: 5 MG, QD, ORAL
     Route: 048
     Dates: start: 20100901, end: 20100930
  2. RADIATION THERAPY (NO INGREDENTS/SUBSTANCES) [Concomitant]

REACTIONS (3)
  - PNEUMONITIS [None]
  - CHEST PAIN [None]
  - DYSPNOEA [None]
